FAERS Safety Report 11738443 (Version 1)
Quarter: 2015Q4

REPORT INFORMATION
  Report Type: Report from Study
  Country: SA (occurrence: SA)
  Receive Date: 20151113
  Receipt Date: 20151113
  Transmission Date: 20160304
  Serious: Yes (Death, Other)
  Sender: FDA-Public Use
  Company Number: SA-BAXTER-2015BAX061771

PATIENT

DRUGS (5)
  1. RINGERS LACTATE SOLU. FOR I.V. INFUSION IN VIAFLEX [Concomitant]
     Indication: FLUID REPLACEMENT
     Route: 042
  2. SODIUM CHLORIDE 0.9% SOLU. FOR I.V. INFU. IN VIAFLEX [Suspect]
     Active Substance: SODIUM CHLORIDE
     Indication: FLUID REPLACEMENT
     Route: 042
  3. ALBUMIN [Suspect]
     Active Substance: ALBUMIN (HUMAN)
     Indication: FLUID REPLACEMENT
     Route: 065
  4. ALBUMIN [Suspect]
     Active Substance: ALBUMIN (HUMAN)
     Route: 065
  5. SODIUM CHLORIDE 0.45% SOLU. FOR  I.V. INFU. IN VIAFLEX [Concomitant]
     Indication: FLUID REPLACEMENT
     Route: 042

REACTIONS (2)
  - Death [Fatal]
  - Acute kidney injury [Unknown]
